FAERS Safety Report 8875188 (Version 1)
Quarter: 2012Q4

REPORT INFORMATION
  Report Type: 
  Country: US (occurrence: US)
  Receive Date: 20121029
  Receipt Date: 20121029
  Transmission Date: 20130627
  Serious: No
  Sender: FDA-Public Use
  Company Number: US-PFIZER INC-2012259213

PATIENT
  Age: 51 Year
  Sex: Female
  Weight: 100 kg

DRUGS (9)
  1. CHANTIX [Suspect]
     Indication: SMOKING CESSATION THERAPY
     Dosage: 0.5 mg, 1x/day
     Route: 048
     Dates: start: 2009, end: 2009
  2. CHANTIX [Suspect]
     Dosage: 0.5 mg, 1x/day
     Route: 048
     Dates: start: 2010, end: 2010
  3. CHANTIX [Suspect]
     Dosage: 0.5 mg, 1x/day
     Route: 048
     Dates: start: 2011, end: 2011
  4. CHANTIX [Suspect]
     Dosage: 0.5 mg, 1x/day
     Route: 048
     Dates: start: 2012, end: 2012
  5. LISINOPRIL [Concomitant]
     Indication: HYPERTENSION
     Dosage: 10 mg, 1x/day
  6. SIMVASTATIN [Concomitant]
     Indication: BLOOD CHOLESTEROL INCREASED
     Dosage: 20 mg, 1x/day
  7. ESTRADIOL [Concomitant]
     Indication: MENOPAUSE
     Dosage: 0.05 mg, 1x/day
  8. ALPRAZOLAM [Concomitant]
     Indication: ANXIETY
     Dosage: 0.05 mg, 1x/day
  9. IBUPROFEN [Concomitant]
     Dosage: UNK

REACTIONS (1)
  - Blood cholesterol abnormal [Unknown]
